FAERS Safety Report 24563954 (Version 2)
Quarter: 2025Q1

REPORT INFORMATION
  Report Type: Report from Study
  Country: BR (occurrence: BR)
  Receive Date: 20241030
  Receipt Date: 20250204
  Transmission Date: 20250409
  Serious: Yes (Other)
  Sender: ABBVIE
  Company Number: BR-ABBOTT-2024A-1390602

PATIENT
  Sex: Female
  Weight: 76 kg

DRUGS (1)
  1. SYNTHROID [Suspect]
     Active Substance: LEVOTHYROXINE SODIUM
     Indication: Thyroid disorder
     Dosage: 1 DOSAGE FORM ONCE A DAY; IN THE MORNING, IN FASTING
     Route: 048

REACTIONS (5)
  - Breast cancer female [Recovered/Resolved]
  - Fall [Unknown]
  - Hypertension [Unknown]
  - Insomnia [Unknown]
  - Stress [Unknown]
